FAERS Safety Report 7012713-6 (Version None)
Quarter: 2010Q3

REPORT INFORMATION
  Report Type: 
  Country: None (occurrence: None)
  Receive Date: 20100924
  Receipt Date: 20100916
  Transmission Date: 20110219
  Serious: Yes (Hospitalization)
  Sender: FDA-Public Use
  Company Number: DZ-ROCHE-728167

PATIENT
  Sex: Female

DRUGS (2)
  1. AVASTIN [Suspect]
     Indication: BREAST CANCER
     Dosage: FREQUENCY: PER CURE, CUMULATIVE DOSE: 800 MG PER CURE.
     Route: 042
     Dates: start: 20100901
  2. NAVELBINE [Suspect]
     Indication: BREAST CANCER
     Dosage: FREQUENCY: DAY 1 AND DAY 8
     Route: 048
     Dates: end: 20100908

REACTIONS (4)
  - AGEUSIA [None]
  - ASTHENIA [None]
  - DECREASED APPETITE [None]
  - WEIGHT DECREASED [None]
